FAERS Safety Report 9012379 (Version 1)
Quarter: 2013Q1

REPORT INFORMATION
  Report Type: Not Available
  Country: FR (occurrence: FR)
  Receive Date: 20130114
  Receipt Date: 20130114
  Transmission Date: 20140127
  Serious: Yes (Hospitalization)
  Sender: FDA-Public Use
  Company Number: FR-ASTELLAS-2013EU000058

PATIENT
  Age: 16 Year
  Sex: Female

DRUGS (11)
  1. PROGRAF [Suspect]
     Dosage: 1 MG, BID
     Route: 048
     Dates: start: 20120125
  2. PROGRAF [Suspect]
     Dosage: 1.5 MG, UID/QD
     Route: 048
     Dates: start: 201203
  3. PROGRAF [Suspect]
     Dosage: 1.7 MG, BID
     Route: 048
     Dates: start: 201210
  4. PROGRAF [Suspect]
     Dosage: 1.5 MG, BID
     Route: 048
  5. CELLCEPT                           /01275102/ [Suspect]
     Dosage: 500 MG, BID
     Route: 048
     Dates: start: 200905
  6. CELLCEPT                           /01275102/ [Suspect]
     Dosage: 250 MG, BID
     Route: 048
     Dates: end: 201106
  7. CELLCEPT                           /01275102/ [Suspect]
     Dosage: 500 MG, BID
     Route: 048
     Dates: start: 201112
  8. CELLCEPT                           /01275102/ [Suspect]
     Dosage: 250 MG, BID
     Route: 048
     Dates: start: 201203
  9. CELLCEPT                           /01275102/ [Suspect]
     Dosage: 500 MG, BID
     Route: 048
  10. CORTANCYL [Suspect]
     Dosage: 2 MG, UID/QD
     Route: 048
     Dates: start: 200905
  11. ROVALCYTE [Concomitant]
     Dosage: UNK
     Route: 065
     Dates: start: 200905

REACTIONS (1)
  - Gastritis haemorrhagic [Recovering/Resolving]
